FAERS Safety Report 18998156 (Version 1)
Quarter: 2021Q1

REPORT INFORMATION
  Report Type: Spontaneous
  Country: IN (occurrence: IN)
  Receive Date: 20210311
  Receipt Date: 20210311
  Transmission Date: 20210420
  Serious: Yes (Other)
  Sender: FDA-Public Use
  Company Number: IN-PFIZER INC-2021219055

PATIENT
  Age: 70 Year
  Sex: Female

DRUGS (7)
  1. SHELCAL HD [Concomitant]
     Active Substance: CALCIUM CARBONATE\CHOLECALCIFEROL
     Dosage: 1 DF, 1X/DAY
  2. LETROZOLE. [Concomitant]
     Active Substance: LETROZOLE
     Dosage: UNK, CYCLIC
  3. PALBACE [Suspect]
     Active Substance: PALBOCICLIB
     Indication: BREAST CANCER METASTATIC
     Dosage: 125 MG, 1X/DAY
     Route: 048
     Dates: start: 20200219
  4. DENOSUMAB [Concomitant]
     Active Substance: DENOSUMAB
     Dosage: 120 G, MONTHLY(ONCE A MONTH)
     Route: 058
  5. PALBACE [Suspect]
     Active Substance: PALBOCICLIB
     Dosage: UNK, CYCLIC
  6. PALBACE [Suspect]
     Active Substance: PALBOCICLIB
     Dosage: 100 G, CYCLIC(CYCLE 11, WITH FOOD ONCE A DAY?21 DAYS THEN STOP )
     Dates: start: 20210222
  7. LETROZOLE. [Concomitant]
     Active Substance: LETROZOLE
     Dosage: 2.5 G, CYCLIC(CYCLE 11 ONCE A DAY)

REACTIONS (2)
  - Diabetes mellitus [Unknown]
  - Blood pressure abnormal [Unknown]
